FAERS Safety Report 20317852 (Version 1)
Quarter: 2022Q1

REPORT INFORMATION
  Report Type: Spontaneous
  Country: US (occurrence: None)
  Receive Date: 20220108
  Receipt Date: 20220108
  Transmission Date: 20220423
  Serious: Yes (Other)
  Sender: FDA-Public Use
  Company Number: None

PATIENT
  Age: 76 Year
  Sex: Male
  Weight: 87.75 kg

DRUGS (4)
  1. TROSPIUM CHLORIDE [Suspect]
     Active Substance: TROSPIUM CHLORIDE
     Indication: Micturition urgency
     Dosage: FREQUENCY : TWICE A DAY;?
     Route: 048
     Dates: start: 20220106, end: 20220107
  2. METFORMIN [Concomitant]
     Active Substance: METFORMIN HYDROCHLORIDE
  3. ATORVASTATIN [Concomitant]
     Active Substance: ATORVASTATIN
  4. Centrum vitamin pill for men over 50 [Concomitant]

REACTIONS (1)
  - Urinary retention [None]

NARRATIVE: CASE EVENT DATE: 20220106
